FAERS Safety Report 16508225 (Version 1)
Quarter: 2019Q3

REPORT INFORMATION
  Report Type: Spontaneous
  Country: US (occurrence: US)
  Receive Date: 20190702
  Receipt Date: 20190702
  Transmission Date: 20191004
  Serious: No
  Sender: FDA-Public Use
  Company Number: US-ROCHE-2160172

PATIENT
  Age: 69 Year
  Sex: Male

DRUGS (1)
  1. XELODA [Suspect]
     Active Substance: CAPECITABINE
     Indication: DUCTAL ADENOCARCINOMA OF PANCREAS
     Dosage: 3 TAB BID
     Route: 048
     Dates: start: 20180605

REACTIONS (6)
  - Asthenia [Unknown]
  - Off label use [Unknown]
  - Pain in extremity [Unknown]
  - Fatigue [Unknown]
  - Dizziness [Unknown]
  - Intentional product use issue [Unknown]

NARRATIVE: CASE EVENT DATE: 20180719
